FAERS Safety Report 10254873 (Version 1)
Quarter: 2014Q2

REPORT INFORMATION
  Report Type: Other
  Country: CN (occurrence: CN)
  Receive Date: 20140624
  Receipt Date: 20140624
  Transmission Date: 20141212
  Serious: Yes (Other)
  Sender: FDA-Public Use
  Company Number: CN-NAPPMUNDI-GBR-2014-0018788

PATIENT
  Age: 59 Year
  Sex: Male

DRUGS (5)
  1. OXYCONTIN TABLETS [Suspect]
     Indication: CANCER PAIN
     Dosage: 40 MG, Q12H
     Route: 048
  2. OXYCONTIN TABLETS [Suspect]
     Dosage: 120 MG, Q12H
     Route: 048
  3. ZOLEDRONIC ACID [Concomitant]
     Indication: CANCER PAIN
     Route: 042
  4. CARBAMAZEPINE [Concomitant]
     Indication: NEURALGIA
     Dosage: 0.1 G, BID
     Route: 065
  5. ESTAZOLAM [Concomitant]
     Indication: POOR QUALITY SLEEP
     Dosage: 2 MG, NOCTE
     Route: 065

REACTIONS (1)
  - Delirium [Recovered/Resolved]
